FAERS Safety Report 21910131 (Version 1)
Quarter: 2023Q1

REPORT INFORMATION
  Report Type: Spontaneous
  Country: US (occurrence: US)
  Receive Date: 20230125
  Receipt Date: 20230125
  Transmission Date: 20230418
  Serious: No
  Sender: FDA-Public Use
  Company Number: US-ALLERGAN-2201761US

PATIENT
  Age: 76 Year
  Sex: Female
  Weight: 55.329 kg

DRUGS (3)
  1. BOTOX [Suspect]
     Active Substance: ONABOTULINUMTOXINA
     Indication: Dyskinesia
     Dosage: UNK UNK, SINGLE
     Dates: start: 20211108, end: 20211108
  2. BOTOX [Suspect]
     Active Substance: ONABOTULINUMTOXINA
     Dosage: UNK UNK, SINGLE
     Dates: start: 20210811, end: 20210811
  3. BOTOX [Suspect]
     Active Substance: ONABOTULINUMTOXINA
     Dosage: UNK UNK, SINGLE
     Dates: start: 20210512, end: 20210512

REACTIONS (9)
  - Off label use [Unknown]
  - Thyroid disorder [Recovered/Resolved]
  - Skin disorder [Not Recovered/Not Resolved]
  - Dry eye [Not Recovered/Not Resolved]
  - Herpes zoster [Recovered/Resolved]
  - Facial paralysis [Not Recovered/Not Resolved]
  - Drug ineffective for unapproved indication [Unknown]
  - Speech disorder [Not Recovered/Not Resolved]
  - Injection site mass [Not Recovered/Not Resolved]

NARRATIVE: CASE EVENT DATE: 20210326
